FAERS Safety Report 6269667-X (Version None)
Quarter: 2009Q3

REPORT INFORMATION
  Report Type: 
  Country: None (occurrence: None)
  Receive Date: 20090716
  Receipt Date: 20090709
  Transmission Date: 20100115
  Serious: Yes (Hospitalization)
  Sender: FDA-Public Use
  Company Number: DE-BIOGENIDEC-2009BI017319

PATIENT
  Age: 47 Year
  Sex: Female
  Weight: 61 kg

DRUGS (2)
  1. TYSABRI [Suspect]
     Indication: MULTIPLE SCLEROSIS
     Route: 042
     Dates: start: 20071121
  2. MULTI-VITAMINS [Concomitant]

REACTIONS (6)
  - BACTERIURIA [None]
  - BLOOD CHOLESTEROL INCREASED [None]
  - CLUSTER HEADACHE [None]
  - DRUG INEFFECTIVE [None]
  - LOW DENSITY LIPOPROTEIN INCREASED [None]
  - NEURALGIA [None]
